FAERS Safety Report 12802740 (Version 2)
Quarter: 2016Q4

REPORT INFORMATION
  Report Type: Spontaneous
  Country: US (occurrence: US)
  Receive Date: 20161003
  Receipt Date: 20161207
  Transmission Date: 20170207
  Serious: No
  Sender: FDA-Public Use
  Company Number: US-JNJFOC-20160918395

PATIENT
  Age: 64 Year
  Sex: Female

DRUGS (13)
  1. LEVAQUIN [Suspect]
     Active Substance: LEVOFLOXACIN
     Indication: BRONCHITIS
     Route: 048
     Dates: start: 2015
  2. LEVAQUIN [Suspect]
     Active Substance: LEVOFLOXACIN
     Indication: BRONCHITIS
     Route: 048
     Dates: start: 20160916
  3. LEVAQUIN [Suspect]
     Active Substance: LEVOFLOXACIN
     Indication: FURUNCLE
     Route: 048
     Dates: start: 2008
  4. LEVAQUIN [Suspect]
     Active Substance: LEVOFLOXACIN
     Indication: BRONCHITIS
     Route: 048
     Dates: start: 2016
  5. LEVAQUIN [Suspect]
     Active Substance: LEVOFLOXACIN
     Indication: BRONCHITIS
     Route: 048
     Dates: start: 2008
  6. LEVAQUIN [Suspect]
     Active Substance: LEVOFLOXACIN
     Indication: URINARY TRACT INFECTION
     Route: 048
     Dates: start: 2015
  7. LEVAQUIN [Suspect]
     Active Substance: LEVOFLOXACIN
     Indication: FURUNCLE
     Route: 048
     Dates: start: 2015
  8. LEVAQUIN [Suspect]
     Active Substance: LEVOFLOXACIN
     Indication: URINARY TRACT INFECTION
     Route: 048
     Dates: start: 2016
  9. LEVAQUIN [Suspect]
     Active Substance: LEVOFLOXACIN
     Indication: URINARY TRACT INFECTION
     Route: 048
     Dates: start: 2008
  10. LEVAQUIN [Suspect]
     Active Substance: LEVOFLOXACIN
     Indication: URINARY TRACT INFECTION
     Route: 048
     Dates: start: 20160916
  11. LEVAQUIN [Suspect]
     Active Substance: LEVOFLOXACIN
     Indication: FURUNCLE
     Route: 048
     Dates: start: 20160916
  12. LEVAQUIN [Suspect]
     Active Substance: LEVOFLOXACIN
     Indication: FURUNCLE
     Route: 048
     Dates: start: 2016
  13. LISINOPRIL. [Concomitant]
     Active Substance: LISINOPRIL
     Indication: BLOOD CHOLESTEROL INCREASED
     Route: 065

REACTIONS (4)
  - Tooth extraction [Unknown]
  - Dry mouth [Not Recovered/Not Resolved]
  - Infection [Unknown]
  - Micturition disorder [Not Recovered/Not Resolved]

NARRATIVE: CASE EVENT DATE: 20160915
